FAERS Safety Report 7295051-6 (Version None)
Quarter: 2011Q1

REPORT INFORMATION
  Report Type: 
  Country: None (occurrence: None)
  Receive Date: 20110216
  Receipt Date: 20110210
  Transmission Date: 20110831
  Serious: Yes (Death, Hospitalization)
  Sender: FDA-Public Use
  Company Number: GB-SANOFI-AVENTIS-2010SA055128

PATIENT
  Age: 79 Year
  Sex: Female

DRUGS (6)
  1. CODEINE SULFATE [Concomitant]
     Route: 048
     Dates: end: 20100802
  2. ATORVASTATIN [Concomitant]
     Route: 048
     Dates: end: 20100802
  3. DALTEPARIN SODIUM [Suspect]
     Route: 065
     Dates: start: 20090914, end: 20100228
  4. LANSOPRAZOLE [Concomitant]
     Route: 048
     Dates: end: 20100802
  5. TAXOTERE [Suspect]
     Route: 041
     Dates: start: 20100723, end: 20100723
  6. BISOPROLOL FUMARATE [Concomitant]
     Route: 048
     Dates: end: 20100802

REACTIONS (3)
  - NEUTROPENIC SEPSIS [None]
  - DEATH [None]
  - DIARRHOEA [None]
